FAERS Safety Report 4349801-9 (Version None)
Quarter: 2004Q2

REPORT INFORMATION
  Report Type: 
  Country: None (occurrence: None)
  Receive Date: 20040426
  Receipt Date: 20040420
  Transmission Date: 20050107
  Serious: Yes (Hospitalization)
  Sender: FDA-Public Use
  Company Number: 2004-04-1035

PATIENT
  Sex: Female

DRUGS (1)
  1. K-DUR 10 [Suspect]
     Dosage: ORAL
     Route: 048

REACTIONS (3)
  - COUGH [None]
  - DYSPHAGIA [None]
  - EPISTAXIS [None]
